FAERS Safety Report 6176545-3 (Version None)
Quarter: 2009Q2

REPORT INFORMATION
  Report Type: 
  Country: None (occurrence: None)
  Receive Date: 20090501
  Receipt Date: 20081008
  Transmission Date: 20091009
  Serious: Yes (Hospitalization, Other)
  Sender: FDA-Public Use
  Company Number: TR-ALEXION-A200800189

PATIENT

DRUGS (4)
  1. SOLIRIS [Suspect]
     Indication: PAROXYSMAL NOCTURNAL HAEMOGLOBINURIA
     Dosage: UNK, UNK
     Route: 042
     Dates: start: 20080601, end: 20080101
  2. INSULIN [Concomitant]
     Indication: DIABETES MELLITUS
  3. COSOPT [Concomitant]
     Indication: GLAUCOMA
     Route: 047
  4. ALPHAGAN                           /01341102/ [Concomitant]
     Indication: GLAUCOMA
     Route: 047

REACTIONS (4)
  - CHOLECYSTITIS [None]
  - DRUG INEFFECTIVE [None]
  - PANCREATITIS [None]
  - SEPSIS [None]
